FAERS Safety Report 13653389 (Version 1)
Quarter: 2017Q2

REPORT INFORMATION
  Report Type: Spontaneous
  Country: US (occurrence: US)
  Receive Date: 20170614
  Receipt Date: 20170614
  Transmission Date: 20170830
  Serious: No
  Sender: FDA-Public Use
  Company Number: US-ROCHE-769868

PATIENT
  Age: 62 Year
  Sex: Female
  Weight: 94.3 kg

DRUGS (2)
  1. TYLENOL EXTRA STRENGTH [Concomitant]
     Active Substance: ACETAMINOPHEN
     Route: 065
  2. XELODA [Suspect]
     Active Substance: CAPECITABINE
     Indication: COLON CANCER
     Dosage: TAKEN 7 DAYS ON AND 7 DAYS OFF
     Route: 048

REACTIONS (4)
  - Diarrhoea [Unknown]
  - Constipation [Recovered/Resolved]
  - Headache [Unknown]
  - Hot flush [Unknown]

NARRATIVE: CASE EVENT DATE: 20110401
